FAERS Safety Report 9571822 (Version 1)
Quarter: 2013Q3

REPORT INFORMATION
  Report Type: Spontaneous
  Country: US (occurrence: None)
  Receive Date: 20130930
  Receipt Date: 20130930
  Transmission Date: 20140515
  Serious: No
  Sender: FDA-Public Use
  Company Number: None

PATIENT
  Age: 36 Year
  Sex: Male

DRUGS (2)
  1. DEPAKOTE [Suspect]
     Indication: EPILEPSY
  2. LAMICTAL [Suspect]
     Indication: EPILEPSY

REACTIONS (3)
  - Abnormal behaviour [None]
  - Aggression [None]
  - Iron deficiency [None]
